FAERS Safety Report 17099411 (Version 1)
Quarter: 2019Q4

REPORT INFORMATION
  Report Type: Spontaneous
  Country: US (occurrence: US)
  Receive Date: 20191201
  Receipt Date: 20191201
  Transmission Date: 20200122
  Serious: No
  Sender: FDA-Public Use
  Company Number: None

PATIENT
  Age: 30 Year
  Sex: Female
  Weight: 54 kg

DRUGS (1)
  1. XYREM [Suspect]
     Active Substance: SODIUM OXYBATE
     Indication: NARCOLEPSY
     Dosage: ?          QUANTITY:4.5 ORAL SOLUTION;OTHER FREQUENCY:TWICE A NIGHT;?
     Route: 048
     Dates: start: 20191108

REACTIONS (2)
  - Treatment failure [None]
  - Product quality issue [None]

NARRATIVE: CASE EVENT DATE: 20191120
